FAERS Safety Report 8495548-7 (Version None)
Quarter: 2012Q3

REPORT INFORMATION
  Report Type: 
  Country: None (occurrence: None)
  Receive Date: 20120709
  Receipt Date: 20120705
  Transmission Date: 20120928
  Serious: Yes (Hospitalization, Other)
  Sender: FDA-Public Use
  Company Number: CA-ROCHE-1079318

PATIENT
  Sex: Female
  Weight: 62.198 kg

DRUGS (6)
  1. CLOPIDOGREL [Concomitant]
  2. METOPROLOL [Concomitant]
  3. VEMURAFENIB [Suspect]
     Indication: METASTATIC MALIGNANT MELANOMA
     Route: 048
  4. CANDESARTAN [Concomitant]
  5. PANTOPRAZOLE [Concomitant]
  6. HYDROCHLOROTHIAZIDE [Concomitant]

REACTIONS (4)
  - EATING DISORDER [None]
  - DYSPHAGIA [None]
  - NAUSEA [None]
  - MALAISE [None]
